FAERS Safety Report 4453341-6 (Version None)
Quarter: 2004Q3

REPORT INFORMATION
  Report Type: 
  Country: None (occurrence: None)
  Receive Date: 20040920
  Receipt Date: 20040908
  Transmission Date: 20050211
  Serious: Yes (Hospitalization)
  Sender: FDA-Public Use
  Company Number: PHBS2004GR11864

PATIENT
  Age: 75 Year
  Sex: Male

DRUGS (7)
  1. VOLTAREN [Suspect]
     Indication: INFLUENZA LIKE ILLNESS
     Dosage: 75 MG, ONCE/SINGLE
     Route: 030
     Dates: start: 20040908, end: 20040908
  2. ZOMETA [Suspect]
     Indication: PROSTATE CANCER METASTATIC
     Dosage: 4 MG, ONCE/SINGLE
     Route: 042
     Dates: start: 20040908, end: 20040908
  3. SALOSPIR [Concomitant]
     Indication: ARRHYTHMIA
     Dosage: 100 MG/DAY
     Route: 048
  4. KERLONE [Concomitant]
     Indication: ARRHYTHMIA
     Route: 048
  5. ACCURETIC [Concomitant]
     Dosage: 0.5 TABLET/DAY
     Route: 048
  6. LOSEC [Concomitant]
     Dosage: 20 MG/DAY
     Route: 048
     Dates: start: 20040818
  7. ESTRACYT [Concomitant]
     Indication: PROSTATE CANCER METASTATIC
     Dosage: 140 MG/DAY
     Route: 048
     Dates: start: 20040818

REACTIONS (4)
  - DYSARTHRIA [None]
  - DYSPHAGIA [None]
  - DYSPNOEA [None]
  - TONGUE OEDEMA [None]
